FAERS Safety Report 10204671 (Version 1)
Quarter: 2014Q2

REPORT INFORMATION
  Report Type: Spontaneous
  Country: US (occurrence: US)
  Receive Date: 20140529
  Receipt Date: 20140529
  Transmission Date: 20141212
  Serious: Yes (Hospitalization)
  Sender: FDA-Public Use
  Company Number: US-VIIV HEALTHCARE LIMITED-A1073797A

PATIENT
  Age: 39 Year
  Sex: Female

DRUGS (1)
  1. SELZENTRY [Suspect]
     Indication: HIV INFECTION
     Dosage: 300MG UNKNOWN
     Route: 065
     Dates: start: 20140502

REACTIONS (3)
  - Ill-defined disorder [Unknown]
  - Exposure during pregnancy [Unknown]
  - Neoplasm malignant [Unknown]
